FAERS Safety Report 15689554 (Version 1)
Quarter: 2018Q4

REPORT INFORMATION
  Report Type: Spontaneous
  Country: US (occurrence: US)
  Receive Date: 20181121
  Receipt Date: 20181121
  Transmission Date: 20190205
  Serious: Yes (Other)
  Sender: FDA-Public Use
  Company Number: None

PATIENT

DRUGS (3)
  1. PHENYLEPHERINE [Suspect]
     Active Substance: PHENYLEPHRINE HYDROCHLORIDE
  2. FLURESS [Suspect]
     Active Substance: BENOXINATE HYDROCHLORIDE\FLUORESCEIN SODIUM
     Indication: OPHTHALMOLOGICAL EXAMINATION
     Route: 031
     Dates: start: 20181018
  3. TROPICAMIDE. [Suspect]
     Active Substance: TROPICAMIDE

REACTIONS (18)
  - Disorientation [None]
  - Speech disorder [None]
  - Headache [None]
  - Dysphagia [None]
  - Nausea [None]
  - Musculoskeletal stiffness [None]
  - Lip swelling [None]
  - Lacrimation decreased [None]
  - Thirst [None]
  - Eye swelling [None]
  - Dry mouth [None]
  - Temporomandibular joint syndrome [None]
  - Throat irritation [None]
  - Chemical burns of eye [None]
  - Eye pain [None]
  - Photophobia [None]
  - Panic reaction [None]
  - Dry eye [None]

NARRATIVE: CASE EVENT DATE: 20181018
